FAERS Safety Report 4502814-6 (Version None)
Quarter: 2004Q4

REPORT INFORMATION
  Report Type: 
  Country: None (occurrence: None)
  Receive Date: 20041112
  Receipt Date: 20041029
  Transmission Date: 20050328
  Serious: Yes (Hospitalization)
  Sender: FDA-Public Use
  Company Number: 2004-BP-10717BP

PATIENT
  Age: 79 Year
  Sex: Female

DRUGS (3)
  1. MOBIC [Suspect]
     Dosage: 7.5 MG (7.5 MG, QD), PO
     Route: 048
  2. PRILOSEC [Concomitant]
  3. PROTONIX [Concomitant]

REACTIONS (4)
  - GASTRIC ULCER [None]
  - GASTROINTESTINAL HAEMORRHAGE [None]
  - HAEMOGLOBIN DECREASED [None]
  - LOSS OF CONSCIOUSNESS [None]
